FAERS Safety Report 6523749-3 (Version None)
Quarter: 2009Q4

REPORT INFORMATION
  Report Type: 
  Country: None (occurrence: None)
  Receive Date: 20091230
  Receipt Date: 20091230
  Transmission Date: 20100525
  Serious: Yes (Hospitalization)
  Sender: FDA-Public Use
  Company Number: None

PATIENT
  Age: 85 Year
  Sex: Male

DRUGS (11)
  1. RAMIPRIL [Suspect]
     Dosage: ORAL
     Route: 048
  2. CHAMPIX (VARIENCLINE TARTRATE) [Suspect]
     Indication: SMOKING CESSATION THERAPY
     Dosage: 1 MG, 2 IN 1 D, ORAL
     Route: 048
  3. SIMVASTATIN [Concomitant]
  4. ALENDRONIC ACID [Concomitant]
  5. ALL OTHER THERAPEUTIC PRODUCTS [Concomitant]
  6. DILTIAZEM [Concomitant]
  7. GLYCERYL TRINITRATE [Concomitant]
  8. LANSOPROZOLE [Concomitant]
  9. PREDNISOLONE [Concomitant]
  10. SERETIDE (FLUTICASONE PROPIONATE MICRONISED + SALMETEROL XINAFOATE MIC [Concomitant]
  11. QUININE SULPHATE (QUININE) [Concomitant]

REACTIONS (3)
  - AMNESIA [None]
  - FALL [None]
  - HEAD INJURY [None]
